FAERS Safety Report 12204167 (Version 1)
Quarter: 2016Q1

REPORT INFORMATION
  Report Type: Spontaneous
  Country: US (occurrence: US)
  Receive Date: 20160323
  Receipt Date: 20160323
  Transmission Date: 20160526
  Serious: Yes (Death)
  Sender: FDA-Public Use
  Company Number: US-ROCHE-1730412

PATIENT
  Age: 59 Year
  Sex: Female

DRUGS (1)
  1. ESBRIET [Suspect]
     Active Substance: PIRFENIDONE
     Indication: IDIOPATHIC PULMONARY FIBROSIS
     Dosage: 3 PILLS (267MG) THREE TIMES ADAY
     Route: 048
     Dates: start: 20150101, end: 20160321

REACTIONS (1)
  - Death [Fatal]

NARRATIVE: CASE EVENT DATE: 20160321
